FAERS Safety Report 9303649 (Version 2)
Quarter: 2013Q2

REPORT INFORMATION
  Report Type: Spontaneous
  Country: US (occurrence: US)
  Receive Date: 20130522
  Receipt Date: 20130522
  Transmission Date: 20140414
  Serious: Yes (Hospitalization)
  Sender: FDA-Public Use
  Company Number: US-MYLANLABS-2013S1010627

PATIENT
  Age: 74 Year
  Sex: Male
  Weight: 88.45 kg

DRUGS (13)
  1. TERAZOSIN HYDROCHLORIDE ANHYDROUS CAPSULES [Suspect]
     Indication: URINE FLOW DECREASED
     Route: 048
     Dates: start: 20130305, end: 20130315
  2. TERAZOSIN HYDROCHLORIDE ANHYDROUS CAPSULES [Suspect]
     Indication: URINE FLOW DECREASED
     Route: 048
     Dates: start: 20130319, end: 20130328
  3. METFORMIN [Concomitant]
     Indication: DIABETES MELLITUS
  4. JANUVIA [Concomitant]
     Indication: DIABETES MELLITUS
  5. NIASPAN [Concomitant]
     Indication: BLOOD CHOLESTEROL INCREASED
  6. RAMIPRIL [Concomitant]
     Indication: BLOOD PRESSURE INCREASED
  7. LIPITOR [Concomitant]
     Indication: BLOOD CHOLESTEROL INCREASED
  8. CYCLOBENZAPRINE [Concomitant]
  9. MVI [Concomitant]
  10. FISH OIL OMEGA 3 [Concomitant]
  11. CALCIUM CARBONATE [Concomitant]
  12. GLUCOSAMINE [Concomitant]
  13. ZYRTEC [Concomitant]
     Indication: SEASONAL ALLERGY

REACTIONS (5)
  - Atrial fibrillation [Recovered/Resolved]
  - Hypotension [Recovered/Resolved]
  - Pulse abnormal [Recovered/Resolved]
  - Fatigue [Recovered/Resolved]
  - Drug prescribing error [Recovered/Resolved]
